FAERS Safety Report 21158400 (Version 2)
Quarter: 2022Q3

REPORT INFORMATION
  Report Type: Report from Study
  Country: CH (occurrence: CH)
  Receive Date: 20220801
  Receipt Date: 20220808
  Transmission Date: 20221027
  Serious: Yes (Hospitalization, Other)
  Sender: FDA-Public Use
  Company Number: CH-ABBVIE-22K-151-4309432-00

PATIENT
  Sex: Male

DRUGS (9)
  1. CARBIDOPA\LEVODOPA [Suspect]
     Active Substance: CARBIDOPA\LEVODOPA
     Indication: Parkinson^s disease
     Route: 050
     Dates: start: 20150813
  2. CARBIDOPA\LEVODOPA [Suspect]
     Active Substance: CARBIDOPA\LEVODOPA
     Dosage: MD: 6 ML, CRD: 3.4 ML/H, CRN: 0 ML/H, ED: 2.5 ML, 16 H THERAPY
     Route: 050
     Dates: start: 20190227
  3. CARBIDOPA\LEVODOPA [Suspect]
     Active Substance: CARBIDOPA\LEVODOPA
     Dosage: MD: 6.4 ML, CRD: 3.6 ML/H, CRN: 0 ML/H, ED: 2.5 ML
     Route: 050
     Dates: start: 20220512, end: 20220512
  4. CARBIDOPA\LEVODOPA [Suspect]
     Active Substance: CARBIDOPA\LEVODOPA
     Dosage: MD: 6.4 ML, CRD: 3.8 ML/H, CRN: 0 ML/H, ED: 2.5 ML
     Route: 050
     Dates: start: 20220512, end: 20220524
  5. CARBIDOPA\LEVODOPA [Suspect]
     Active Substance: CARBIDOPA\LEVODOPA
     Dosage: MD: 6.4 ML, CRD: 3.6 ML/H, CRN: 0 ML/H, ED: 2.5 ML
     Route: 050
     Dates: start: 20220524, end: 20220524
  6. CARBIDOPA\LEVODOPA [Suspect]
     Active Substance: CARBIDOPA\LEVODOPA
     Route: 050
     Dates: start: 20220524, end: 20220726
  7. CARBIDOPA\LEVODOPA [Suspect]
     Active Substance: CARBIDOPA\LEVODOPA
     Route: 050
  8. CARBIDOPA\LEVODOPA [Suspect]
     Active Substance: CARBIDOPA\LEVODOPA
     Dosage: MD: 6.4 ML, CRD: 3.6 ML/H, CRN: 0 ML/H, ED: 2.5 ML
     Route: 050
     Dates: start: 20220726
  9. CARBIDOPA\LEVODOPA [Suspect]
     Active Substance: CARBIDOPA\LEVODOPA
     Route: 050

REACTIONS (12)
  - Medical device change [Recovered/Resolved]
  - Abdominal hernia [Recovered/Resolved]
  - Genital erythema [Unknown]
  - Dry skin [Unknown]
  - Fatigue [Not Recovered/Not Resolved]
  - Stoma site erythema [Unknown]
  - Akinesia [Unknown]
  - Freezing phenomenon [Unknown]
  - Stoma site discharge [Recovered/Resolved]
  - Stoma site oedema [Not Recovered/Not Resolved]
  - Stoma site irritation [Not Recovered/Not Resolved]
  - Stoma site discharge [Not Recovered/Not Resolved]

NARRATIVE: CASE EVENT DATE: 20220101
